FAERS Safety Report 14656302 (Version 1)
Quarter: 2018Q1

REPORT INFORMATION
  Report Type: Spontaneous
  Country: US (occurrence: US)
  Receive Date: 20180319
  Receipt Date: 20180319
  Transmission Date: 20180509
  Serious: Yes (Hospitalization)
  Sender: FDA-Public Use
  Company Number: None

PATIENT
  Age: 60 Year
  Sex: Male
  Weight: 66.68 kg

DRUGS (2)
  1. VALACYCLOVIR [Concomitant]
     Active Substance: VALACYCLOVIR HYDROCHLORIDE
  2. IMBRUVICA [Suspect]
     Active Substance: IBRUTINIB
     Indication: WALDENSTROM^S MACROGLOBULINAEMIA
     Dosage: 140MG 2 PILLS 2 PILLS ONCE DAILY ANYTIME MOUTH
     Route: 048
     Dates: start: 20160129

REACTIONS (5)
  - Headache [None]
  - Pain [None]
  - Pyrexia [None]
  - Withdrawal syndrome [None]
  - Platelet count decreased [None]

NARRATIVE: CASE EVENT DATE: 20160223
